FAERS Safety Report 5508128-X (Version None)
Quarter: 2007Q4

REPORT INFORMATION
  Report Type: 
  Country: None (occurrence: None)
  Receive Date: 20071106
  Receipt Date: 20071025
  Transmission Date: 20080405
  Serious: Yes (Hospitalization)
  Sender: FDA-Public Use
  Company Number: US-ELI_LILLY_AND_COMPANY-US200710006497

PATIENT
  Age: 18 Year
  Sex: Female
  Weight: 141.4 kg

DRUGS (3)
  1. CYMBALTA [Suspect]
     Indication: POST-TRAUMATIC STRESS DISORDER
     Dosage: 90 MG, DAILY (1/D)
     Route: 048
     Dates: start: 20050101, end: 20071021
  2. LISINOPRIL [Concomitant]
     Indication: HYPERTENSION
  3. HYDROCHLOROTHIAZIDE [Concomitant]
     Indication: HYPERTENSION

REACTIONS (8)
  - ANXIETY [None]
  - ARTHRALGIA [None]
  - FEELING ABNORMAL [None]
  - INSOMNIA [None]
  - NAUSEA [None]
  - POLYCYSTIC OVARIES [None]
  - STAPHYLOCOCCAL INFECTION [None]
  - VOMITING [None]
